FAERS Safety Report 8956727 (Version 2)
Quarter: 2013Q1

REPORT INFORMATION
  Report Type: Spontaneous
  Country: US (occurrence: US)
  Receive Date: 20121210
  Receipt Date: 20130111
  Transmission Date: 20140127
  Serious: No
  Sender: FDA-Public Use
  Company Number: US-PFIZER INC-2012309794

PATIENT
  Age: 36 Year
  Sex: Female
  Weight: 96 kg

DRUGS (7)
  1. EFFEXOR XR [Suspect]
     Indication: ANXIETY
     Dosage: 150 MG, UNK
     Route: 048
     Dates: end: 201212
  2. EFFEXOR XR [Suspect]
     Indication: DEPRESSION
  3. WELLBUTRIN XL [Concomitant]
     Dosage: UNK
  4. RISPERDAL [Concomitant]
     Dosage: UNK
  5. CONCERTA [Concomitant]
     Dosage: UNK
  6. SINGULAIR [Concomitant]
     Dosage: UNK
  7. ORTHO MICRONOR [Concomitant]
     Dosage: UNK

REACTIONS (2)
  - Withdrawal syndrome [Recovered/Resolved]
  - Dizziness [Recovered/Resolved]
